FAERS Safety Report 21775890 (Version 1)
Quarter: 2022Q4

REPORT INFORMATION
  Report Type: Spontaneous
  Country: US (occurrence: US)
  Receive Date: 20221226
  Receipt Date: 20221226
  Transmission Date: 20230113
  Serious: No
  Sender: FDA-Public Use
  Company Number: US-MIGRATION_PFIZER-2022BHV002419

PATIENT
  Age: 70 Year
  Sex: Female
  Weight: 113.50 kg

DRUGS (1)
  1. NURTEC ODT [Suspect]
     Active Substance: RIMEGEPANT SULFATE
     Indication: Migraine
     Dosage: PRESCRIPTION WAS FILLED ON 25-MAR-2021; PROBABLY STARTED MAR OR APR OF LAST YEAR (2021); TOOK 3 PILL
     Route: 048
     Dates: start: 2021

REACTIONS (3)
  - Gastrointestinal disorder [Unknown]
  - Lichen planus [Unknown]
  - Abdominal pain upper [Recovered/Resolved]

NARRATIVE: CASE EVENT DATE: 20210101
